FAERS Safety Report 5121131-7 (Version None)
Quarter: 2006Q4

REPORT INFORMATION
  Report Type: 
  Country: None (occurrence: None)
  Receive Date: 20061005
  Receipt Date: 20060925
  Transmission Date: 20070319
  Serious: Yes (Hospitalization)
  Sender: FDA-Public Use
  Company Number: SE-ABBOTT-06P-150-0344890-00

PATIENT
  Age: 26 Year
  Sex: Female

DRUGS (5)
  1. ERGENYL [Suspect]
     Indication: HYPOMANIA
     Route: 048
     Dates: start: 20050501, end: 20050920
  2. TRANYLCYPROMINE SULFATE [Suspect]
     Indication: DEPRESSION
     Route: 048
     Dates: start: 20050601, end: 20050919
  3. TRANYLCYPROMINE SULFATE [Suspect]
     Dates: start: 20050920
  4. FUROSEMIDE [Concomitant]
     Indication: DRUG USE FOR UNKNOWN INDICATION
     Route: 048
  5. ZOPICLONE [Concomitant]
     Indication: DRUG USE FOR UNKNOWN INDICATION
     Route: 048

REACTIONS (9)
  - BREATH SOUNDS ABNORMAL [None]
  - COLD SWEAT [None]
  - DYSPNOEA [None]
  - FATIGUE [None]
  - FLUID RETENTION [None]
  - LIVER FUNCTION TEST ABNORMAL [None]
  - OEDEMA PERIPHERAL [None]
  - URINE OUTPUT DECREASED [None]
  - WEIGHT INCREASED [None]
